FAERS Safety Report 23154595 (Version 7)
Quarter: 2024Q2

REPORT INFORMATION
  Report Type: Report from Study
  Country: US (occurrence: US)
  Receive Date: 20231107
  Receipt Date: 20240411
  Transmission Date: 20240716
  Serious: Yes (Hospitalization, Other)
  Sender: FDA-Public Use
  Company Number: US-HORIZON THERAPEUTICS-HZN-2023-008676

PATIENT

DRUGS (2)
  1. TEPEZZA [Suspect]
     Active Substance: TEPROTUMUMAB-TRBW
     Indication: Endocrine ophthalmopathy
     Dosage: 10 MG/KG (680MG)
     Route: 042
     Dates: start: 20230921
  2. TEPEZZA [Suspect]
     Active Substance: TEPROTUMUMAB-TRBW
     Dosage: 20 MG/KG (1360MG)
     Route: 042
     Dates: start: 20231020

REACTIONS (8)
  - Seizure [Unknown]
  - Seizure [Unknown]
  - Posterior reversible encephalopathy syndrome [Recovering/Resolving]
  - Blood pressure increased [Unknown]
  - Loss of consciousness [Unknown]
  - Blood glucose increased [Unknown]
  - Headache [Unknown]
  - Headache [Not Recovered/Not Resolved]

NARRATIVE: CASE EVENT DATE: 20231024
